FAERS Safety Report 9995435 (Version 1)
Quarter: 2014Q1

REPORT INFORMATION
  Report Type: Report from Study
  Country: MX (occurrence: MX)
  Receive Date: 20140311
  Receipt Date: 20140311
  Transmission Date: 20141002
  Serious: Yes (Other)
  Sender: FDA-Public Use
  Company Number: MX-ROCHE-1361379

PATIENT
  Age: 67 Year
  Sex: Female
  Weight: 60 kg

DRUGS (4)
  1. XELODA [Suspect]
     Indication: GASTRIC CANCER
     Route: 065
  2. DOCETAXEL [Suspect]
     Indication: GASTRIC CANCER
     Route: 065
  3. EPIRUBICINA [Concomitant]
  4. OXALIPLATINO [Concomitant]

REACTIONS (3)
  - Disease progression [Unknown]
  - Anaemia [Unknown]
  - Diarrhoea [Unknown]
